FAERS Safety Report 4471879-2 (Version None)
Quarter: 2004Q4

REPORT INFORMATION
  Report Type: 
  Country: None (occurrence: None)
  Receive Date: 20041007
  Receipt Date: 20040923
  Transmission Date: 20050328
  Serious: Yes (Hospitalization)
  Sender: FDA-Public Use
  Company Number: 2004IC000876

PATIENT
  Age: 73 Year
  Sex: Female

DRUGS (5)
  1. FLUOROURACIL [Suspect]
     Dosage: 750 MG; DAILY; INTRAVENOUS
     Route: 042
     Dates: start: 20040517, end: 20040519
  2. LEDERFOLINE (GENERIC UNKNONWN) [Suspect]
     Dosage: 325 MG; DAILY; INTRAVENOUS
     Route: 042
     Dates: start: 20040517, end: 20040517
  3. SOLU-MEDROL [Suspect]
     Dosage: 80 MG; INTRAVENOUS
     Route: 042
     Dates: start: 20040517, end: 20040518
  4. ONDANSETRON HYDROCHLORIDE [Suspect]
     Dosage: 8 MG; INTRAVENOUS
     Route: 042
     Dates: start: 20040517, end: 20040518
  5. ELOXATIN [Suspect]
     Dosage: 120 MG; DAILY; INTRAVENOUS
     Route: 042
     Dates: start: 20040517, end: 20040517

REACTIONS (3)
  - CHILLS [None]
  - DIZZINESS [None]
  - PYREXIA [None]
